FAERS Safety Report 16356559 (Version 2)
Quarter: 2019Q2

REPORT INFORMATION
  Report Type: Spontaneous
  Country: SK (occurrence: SK)
  Receive Date: 20190527
  Receipt Date: 20190603
  Transmission Date: 20190711
  Serious: Yes (Hospitalization)
  Sender: FDA-Public Use
  Company Number: SK-SA-2019SA137623

PATIENT
  Age: 56 Year
  Sex: Male

DRUGS (3)
  1. ANOPYRIN [Suspect]
     Active Substance: ASPIRIN
     Indication: PROPHYLAXIS
  2. CLEXANE [Suspect]
     Active Substance: ENOXAPARIN SODIUM
     Dosage: 0.6 ML, QD
     Route: 058
  3. CLEXANE [Suspect]
     Active Substance: ENOXAPARIN SODIUM
     Indication: ANXIETY
     Dosage: 0.8 ML, QD
     Route: 058

REACTIONS (1)
  - Haematoma [Recovering/Resolving]
